FAERS Safety Report 7604082-5 (Version None)
Quarter: 2011Q3

REPORT INFORMATION
  Report Type: 
  Country: None (occurrence: None)
  Receive Date: 20110712
  Receipt Date: 20110705
  Transmission Date: 20111222
  Serious: Yes (Death)
  Sender: FDA-Public Use
  Company Number: US-ASTRAZENECA-2010SE18272

PATIENT
  Age: 48 Year
  Sex: Female

DRUGS (1)
  1. NEXIUM [Suspect]
     Route: 048

REACTIONS (5)
  - NASOPHARYNGITIS [None]
  - LIVER DISORDER [None]
  - DYSPNOEA [None]
  - MALAISE [None]
  - DRUG DOSE OMISSION [None]
